FAERS Safety Report 5760632-5 (Version None)
Quarter: 2008Q2

REPORT INFORMATION
  Report Type: 
  Country: None (occurrence: None)
  Receive Date: 20080602
  Receipt Date: 20080519
  Transmission Date: 20081010
  Serious: Yes (Death, Other)
  Sender: FDA-Public Use
  Company Number: OPER20080094

PATIENT
  Age: 15 Year
  Sex: Male
  Weight: 63.05 kg

DRUGS (1)
  1. OPANA ER [Suspect]
     Dosage: 40 MG, 1 TABLET

REACTIONS (7)
  - CARDIAC ARREST [None]
  - COMA [None]
  - DRUG ABUSE [None]
  - PULMONARY OEDEMA [None]
  - THERAPEUTIC AGENT TOXICITY [None]
  - URINARY RETENTION [None]
  - WRONG TECHNIQUE IN DRUG USAGE PROCESS [None]
